FAERS Safety Report 5040879-6 (Version None)
Quarter: 2006Q2

REPORT INFORMATION
  Report Type: 
  Country: None (occurrence: None)
  Receive Date: 20060601
  Receipt Date: 20060228
  Transmission Date: 20061013
  Serious: No
  Sender: FDA-Public Use
  Company Number: 2006PV009523

PATIENT
  Age: 63 Year
  Sex: Female
  Weight: 68.4932 kg

DRUGS (1)
  1. BYETTA [Suspect]
     Indication: DIABETES MELLITUS NON-INSULIN-DEPENDENT
     Dosage: 10 MCG;BID;SC
     Route: 058
     Dates: start: 20060225

REACTIONS (3)
  - BACK DISORDER [None]
  - CONSTIPATION [None]
  - CONTUSION [None]
